FAERS Safety Report 5623912-X (Version None)
Quarter: 2008Q1

REPORT INFORMATION
  Report Type: 
  Country: None (occurrence: None)
  Receive Date: 20080207
  Receipt Date: 20080130
  Transmission Date: 20080703
  Serious: Yes (Hospitalization)
  Sender: FDA-Public Use
  Company Number: 167-20785-08020110

PATIENT
  Age: 64 Year
  Sex: Male

DRUGS (6)
  1. THALOMID [Suspect]
     Indication: MULTIPLE MYELOMA
     Dosage: 100 MG, 4TH CYCLE, ORAL; 200 MG, 4TH CYCLE, ORAL
     Route: 048
  2. CYCLOPHOSPHAMIDE [Concomitant]
  3. DEXAMETHASONE TAB [Concomitant]
  4. ALLOPURINOL [Concomitant]
  5. LANSOPRAZOLE [Concomitant]
  6. WARFARIN SODIUM [Concomitant]

REACTIONS (6)
  - ABSCESS INTESTINAL [None]
  - DIVERTICULUM INTESTINAL [None]
  - GASTROINTESTINAL NECROSIS [None]
  - LARGE INTESTINAL ULCER [None]
  - LARGE INTESTINE PERFORATION [None]
  - PERITONITIS [None]
